FAERS Safety Report 10378407 (Version 1)
Quarter: 2014Q3

REPORT INFORMATION
  Report Type: Spontaneous
  Country: US (occurrence: None)
  Receive Date: 20140811
  Receipt Date: 20140811
  Transmission Date: 20150326
  Serious: Yes (Other)
  Sender: FDA-Public Use
  Company Number: None

PATIENT
  Age: 73 Year
  Sex: Female
  Weight: 63.5 kg

DRUGS (10)
  1. VITAMIN D3 [Concomitant]
     Active Substance: CHOLECALCIFEROL
  2. PLAVIX [Suspect]
     Active Substance: CLOPIDOGREL BISULFATE
     Indication: SKIN HAEMORRHAGE
     Dosage: 1 TAB 3X WEEK, + ? EVERY DAY ONCE A DAY BY MOUTH
     Route: 048
     Dates: start: 2013, end: 2014
  3. PLAVIX [Suspect]
     Active Substance: CLOPIDOGREL BISULFATE
     Indication: ARTERIAL DISORDER
     Dosage: 1 TAB 3X WEEK, + ? EVERY DAY ONCE A DAY BY MOUTH
     Route: 048
     Dates: start: 2013, end: 2014
  4. BP MEDS [Concomitant]
  5. VITAMIN B12 [Concomitant]
     Active Substance: CYANOCOBALAMIN
  6. FLOVENT [Concomitant]
     Active Substance: FLUTICASONE PROPIONATE
  7. PLAVIX [Suspect]
     Active Substance: CLOPIDOGREL BISULFATE
     Dosage: 1 TAB 3X WEEK, + ? EVERY DAY ONCE A DAY BY MOUTH
     Route: 048
     Dates: start: 2013, end: 2014
  8. BABY ASPIRIN [Concomitant]
     Active Substance: ASPIRIN
  9. PRAVASTATIN [Concomitant]
     Active Substance: PRAVASTATIN\PRAVASTATIN SODIUM
  10. POTASSIUM [Concomitant]
     Active Substance: POTASSIUM

REACTIONS (3)
  - Contusion [None]
  - Skin disorder [None]
  - Skin haemorrhage [None]

NARRATIVE: CASE EVENT DATE: 2013
